FAERS Safety Report 11760805 (Version 1)
Quarter: 2015Q4

REPORT INFORMATION
  Report Type: Spontaneous
  Country: US (occurrence: US)
  Receive Date: 20151120
  Receipt Date: 20151120
  Transmission Date: 20160304
  Serious: No
  Sender: FDA-Public Use
  Company Number: US-ELI_LILLY_AND_COMPANY-US201211009436

PATIENT
  Age: 68 Year
  Sex: Female

DRUGS (2)
  1. FORTEO [Suspect]
     Active Substance: TERIPARATIDE
     Indication: OSTEOPENIA
     Dosage: 20 UG, QD
     Route: 065
     Dates: start: 201211
  2. ADVIL [Concomitant]
     Active Substance: IBUPROFEN
     Indication: INSOMNIA

REACTIONS (6)
  - Bone pain [Unknown]
  - Pain [Unknown]
  - Dizziness [Recovered/Resolved]
  - Dry mouth [Unknown]
  - Vision blurred [Unknown]
  - Off label use [Not Recovered/Not Resolved]

NARRATIVE: CASE EVENT DATE: 201211
